FAERS Safety Report 5368619-1 (Version None)
Quarter: 2007Q2

REPORT INFORMATION
  Report Type: 
  Country: None (occurrence: None)
  Receive Date: 20070621
  Receipt Date: 20070621
  Transmission Date: 20071010
  Serious: Yes (Hospitalization)
  Sender: FDA-Public Use
  Company Number: None

PATIENT
  Sex: Female
  Weight: 38.9 kg

DRUGS (3)
  1. CYTARABINE [Suspect]
     Dosage: 10000 MG
  2. MYLOTARG [Suspect]
     Dosage: 3.8 MG
  3. MITOXANTRONE HCL [Suspect]
     Dosage: 60 MG

REACTIONS (18)
  - ASPERGILLOSIS [None]
  - BACTERIAL INFECTION [None]
  - BRAIN HERNIATION [None]
  - BRAIN SCAN ABNORMAL [None]
  - CEREBRAL HAEMORRHAGE [None]
  - CEREBRAL INFARCTION [None]
  - FACIAL NERVE DISORDER [None]
  - FACIAL PALSY [None]
  - FUNGAL INFECTION [None]
  - LOSS OF CONSCIOUSNESS [None]
  - MENINGITIS [None]
  - NERVE COMPRESSION [None]
  - NEUTROPENIA [None]
  - OBSTRUCTION [None]
  - OTITIS EXTERNA [None]
  - RESPIRATORY DISTRESS [None]
  - STREPTOCOCCAL INFECTION [None]
  - SWELLING [None]
